FAERS Safety Report 7898384-5 (Version None)
Quarter: 2011Q4

REPORT INFORMATION
  Report Type: 
  Country: None (occurrence: None)
  Receive Date: 20111107
  Receipt Date: 20111027
  Transmission Date: 20120403
  Serious: Yes (Death)
  Sender: FDA-Public Use
  Company Number: US-MYLANLABS-2010S1007277

PATIENT
  Age: 80 Year
  Sex: Male
  Weight: 105.05 kg

DRUGS (12)
  1. PLAVIX [Concomitant]
     Indication: MYOCARDIAL ISCHAEMIA
     Route: 048
  2. SPIRIVA [Concomitant]
     Indication: DYSPNOEA
     Route: 055
  3. TORSEMIDE [Concomitant]
     Indication: FLUID OVERLOAD
     Route: 048
  4. FENTANYL-100 [Suspect]
     Indication: BACK PAIN
     Route: 062
     Dates: start: 20090504, end: 20090526
  5. COREG [Concomitant]
     Indication: HYPERTENSION
     Route: 048
  6. HYDRALAZINE HCL [Concomitant]
     Route: 048
  7. IMDUR [Concomitant]
     Indication: MYOCARDIAL ISCHAEMIA
     Route: 048
  8. PROTONIX [Concomitant]
     Indication: GASTROOESOPHAGEAL REFLUX DISEASE
     Route: 048
  9. ATROVENT [Concomitant]
     Indication: DYSPNOEA
     Route: 055
  10. NOVOLOG [Concomitant]
     Indication: DIABETES MELLITUS
     Dosage: 33 IU QAM/20 IU HS
     Route: 058
  11. ASPIRIN [Concomitant]
     Indication: CARDIAC FAILURE CONGESTIVE
     Route: 048
  12. ALBUTEROL [Concomitant]
     Indication: DYSPNOEA
     Route: 055

REACTIONS (2)
  - RESPIRATORY ARREST [None]
  - HYPERTENSIVE HEART DISEASE [None]
